FAERS Safety Report 24152915 (Version 1)
Quarter: 2024Q3

REPORT INFORMATION
  Report Type: Report from Study
  Country: ZA (occurrence: ZA)
  Receive Date: 20240730
  Receipt Date: 20240730
  Transmission Date: 20241016
  Serious: Yes (Other)
  Sender: NOVARTIS
  Company Number: ZA-002147023-NVSC2024ZA153562

PATIENT
  Age: 35 Year
  Sex: Female
  Weight: 78 kg

DRUGS (2)
  1. COSENTYX [Suspect]
     Active Substance: SECUKINUMAB
     Indication: Psoriatic arthropathy
     Dosage: 150 MG, QMO
     Route: 058
     Dates: start: 20220523
  2. COSENTYX [Suspect]
     Active Substance: SECUKINUMAB
     Indication: Spondylitis

REACTIONS (1)
  - Haemoglobin abnormal [Not Recovered/Not Resolved]
